FAERS Safety Report 4912611-5 (Version None)
Quarter: 2006Q1

REPORT INFORMATION
  Report Type: 
  Country: None (occurrence: None)
  Receive Date: 20060215
  Receipt Date: 20060109
  Transmission Date: 20060701
  Serious: Yes (Hospitalization, Other)
  Sender: FDA-Public Use
  Company Number: US-MERCK-0601USA01024

PATIENT
  Age: 73 Year
  Sex: Male
  Weight: 75 kg

DRUGS (16)
  1. VIOXX [Suspect]
     Indication: OSTEOARTHRITIS
     Route: 048
     Dates: start: 20010410, end: 20040101
  2. NORVASC [Concomitant]
     Route: 065
  3. VICODIN [Concomitant]
     Route: 065
  4. NEXIUM [Concomitant]
     Route: 065
  5. LIPITOR [Concomitant]
     Route: 065
  6. DITROPAN [Concomitant]
     Route: 065
  7. VITAMINS (UNSPECIFIED) [Concomitant]
     Route: 065
  8. COUMADIN [Concomitant]
     Route: 065
  9. TRAZODONE HYDROCHLORIDE [Concomitant]
     Route: 065
  10. CRESTOR [Concomitant]
     Route: 065
  11. TRICOR [Concomitant]
     Route: 065
  12. VITAMIN A [Concomitant]
     Route: 065
  13. VITAMIN E [Concomitant]
     Route: 065
  14. ASCORBIC ACID [Concomitant]
     Route: 065
  15. MINOXIDIL [Concomitant]
     Route: 065
  16. PLAVIX [Concomitant]
     Route: 065

REACTIONS (6)
  - CARDIAC DISORDER [None]
  - CARDIAC FAILURE CONGESTIVE [None]
  - CEREBROVASCULAR ACCIDENT [None]
  - DEPRESSION [None]
  - MYOCARDIAL INFARCTION [None]
  - SURGERY [None]
